FAERS Safety Report 18049131 (Version 10)
Quarter: 2024Q1

REPORT INFORMATION
  Report Type: Spontaneous
  Country: US (occurrence: US)
  Receive Date: 20200721
  Receipt Date: 20240109
  Transmission Date: 20240410
  Serious: No
  Sender: FDA-Public Use
  Company Number: US-PFIZER INC-2020276282

PATIENT
  Age: 66 Year
  Sex: Female

DRUGS (2)
  1. IBRANCE [Suspect]
     Active Substance: PALBOCICLIB
     Indication: Breast cancer female
     Dosage: 14 DAYS ON AND 14 DAYS OFF DOSING
     Dates: start: 20200703
  2. IBRANCE [Suspect]
     Active Substance: PALBOCICLIB
     Dosage: DAILY FOR 14 DAYS ON WITH 14 DAYS OFF WITH FOOD
     Route: 048

REACTIONS (4)
  - Liver function test abnormal [Unknown]
  - White blood cell count decreased [Unknown]
  - Weight decreased [Unknown]
  - Off label use [Unknown]
